FAERS Safety Report 19098345 (Version 2)
Quarter: 2021Q2

REPORT INFORMATION
  Report Type: Spontaneous
  Country: US (occurrence: US)
  Receive Date: 20210406
  Receipt Date: 20210408
  Transmission Date: 20210717
  Serious: Yes (Other)
  Sender: FDA-Public Use
  Company Number: US-BAYER-2021-113337

PATIENT
  Age: 50 Year
  Sex: Female

DRUGS (10)
  1. ACICLOVIR [Concomitant]
     Active Substance: ACYCLOVIR
  2. HYDROXYCHLOROQUINE [Concomitant]
     Active Substance: HYDROXYCHLOROQUINE
  3. ARMOUR THYROID [Concomitant]
     Active Substance: THYROID, PORCINE
  4. MIRENA [Suspect]
     Active Substance: LEVONORGESTREL
     Indication: HEAVY MENSTRUAL BLEEDING
  5. MELOXICAM. [Concomitant]
     Active Substance: MELOXICAM
     Indication: PAIN
  6. MIRENA [Suspect]
     Active Substance: LEVONORGESTREL
     Indication: MENSTRUATION IRREGULAR
     Dosage: 20 ?G PER DAY CONTINUOUSLY
     Route: 015
     Dates: start: 20180529, end: 20210303
  7. CABERGOLINE. [Concomitant]
     Active Substance: CABERGOLINE
     Indication: PITUITARY TUMOUR
  8. MELOXICAM. [Concomitant]
     Active Substance: MELOXICAM
     Indication: INFLAMMATION
  9. DOXYCYCLINE. [Concomitant]
     Active Substance: DOXYCYCLINE
  10. ESTROGEN [Concomitant]
     Active Substance: ESTROGENS
     Indication: VULVOVAGINAL DRYNESS

REACTIONS (23)
  - Pollakiuria [Recovering/Resolving]
  - Anorgasmia [None]
  - Acne [None]
  - Hirsutism [None]
  - Fatigue [Recovered/Resolved]
  - Patient-device incompatibility [Recovering/Resolving]
  - Autoimmune disorder [None]
  - Hypoaesthesia [Recovering/Resolving]
  - Diarrhoea [None]
  - Neuropathy peripheral [None]
  - Asthenia [None]
  - Musculoskeletal pain [Recovered/Resolved]
  - Abdominal pain [Recovered/Resolved]
  - Vaginal discharge [Recovering/Resolving]
  - Device issue [None]
  - Polymenorrhoea [Recovered/Resolved]
  - Vaginal infection [None]
  - Weight increased [None]
  - Depression [Recovered/Resolved]
  - Pain [Recovered/Resolved]
  - Paraesthesia [None]
  - Alopecia [None]
  - Dizziness [Recovering/Resolving]

NARRATIVE: CASE EVENT DATE: 2020
